FAERS Safety Report 10979214 (Version 1)
Quarter: 2015Q1

REPORT INFORMATION
  Report Type: Spontaneous
  Country: US (occurrence: None)
  Receive Date: 20150226
  Receipt Date: 20150226
  Transmission Date: 20150721
  Serious: Yes (Other)
  Sender: FDA-Public Use
  Company Number: TPA2013A05595

PATIENT
  Age: 64 Year
  Sex: Male
  Weight: 68 kg

DRUGS (8)
  1. AMARYL [Concomitant]
     Active Substance: GLIMEPIRIDE
  2. JANUVIA [Concomitant]
     Active Substance: SITAGLIPTIN PHOSPHATE
  3. ACTOS [Suspect]
     Active Substance: PIOGLITAZONE HYDROCHLORIDE
     Indication: TYPE 2 DIABETES MELLITUS
     Dates: start: 20010731, end: 2009
  4. GLIMEPIRIDE (GLIMEPIRIDE) [Concomitant]
     Active Substance: GLIMEPIRIDE
  5. PRECOSE (ACARBOSE) [Concomitant]
  6. GLUCOPHAGE [Concomitant]
     Active Substance: METFORMIN HYDROCHLORIDE
  7. METFORMIN [Concomitant]
     Active Substance: METFORMIN HYDROCHLORIDE
  8. LANTUS [Concomitant]
     Active Substance: INSULIN GLARGINE

REACTIONS (2)
  - Blood urine present [None]
  - Bladder cancer [None]

NARRATIVE: CASE EVENT DATE: 20020801
